FAERS Safety Report 19609401 (Version 1)
Quarter: 2021Q3

REPORT INFORMATION
  Report Type: Spontaneous
  Country: US (occurrence: US)
  Receive Date: 20210726
  Receipt Date: 20210726
  Transmission Date: 20211014
  Serious: Yes (Other)
  Sender: FDA-Public Use
  Company Number: US-GLAXOSMITHKLINE-US2021GSK159890

PATIENT
  Sex: Male

DRUGS (4)
  1. ZANTAC [Suspect]
     Active Substance: RANITIDINE HYDROCHLORIDE
     Indication: DYSPEPSIA
     Dosage: 75 MG, 2? 75 MG PER DAY OR 1? 150 MG PER DAY
     Route: 065
     Dates: start: 199101, end: 201112
  2. ZANTAC [Suspect]
     Active Substance: RANITIDINE HYDROCHLORIDE
     Dosage: 150 MG,  2? 75 MG PER DAY OR 1? 150 MG PER DAY
     Route: 065
     Dates: start: 199101, end: 201112
  3. ZANTAC [Suspect]
     Active Substance: RANITIDINE HYDROCHLORIDE
     Dosage: 150 MG,  2? 75 MG PER DAY OR 1? 150 MG PER DAY
     Route: 065
     Dates: start: 199101, end: 201112
  4. ZANTAC [Suspect]
     Active Substance: RANITIDINE HYDROCHLORIDE
     Indication: DYSPEPSIA
     Dosage: 75 MG,  2? 75 MG PER DAY OR 1? 150 MG PER DAY
     Route: 065
     Dates: start: 199101, end: 201112

REACTIONS (1)
  - Prostate cancer [Unknown]
